FAERS Safety Report 9640015 (Version 3)
Quarter: 2014Q1

REPORT INFORMATION
  Report Type: Report from Study
  Country: FR (occurrence: FR)
  Receive Date: 20131023
  Receipt Date: 20140127
  Transmission Date: 20141002
  Serious: Yes (Other)
  Sender: FDA-Public Use
  Company Number: PHHY2013FR025544

PATIENT
  Age: 54 Year
  Sex: Female

DRUGS (2)
  1. EXTAVIA [Suspect]
     Indication: MULTIPLE SCLEROSIS
     Dosage: 250 UG, QOD
     Route: 058
     Dates: start: 20130101
  2. MANTADIX [Concomitant]
     Dosage: UNK UKN, UNK

REACTIONS (11)
  - Movement disorder [Recovered/Resolved]
  - Multiple sclerosis [Unknown]
  - Dysgeusia [Not Recovered/Not Resolved]
  - Dry mouth [Not Recovered/Not Resolved]
  - Tongue discolouration [Not Recovered/Not Resolved]
  - Glossodynia [Not Recovered/Not Resolved]
  - Acne [Recovered/Resolved]
  - Ageusia [Not Recovered/Not Resolved]
  - Pruritus [Unknown]
  - Muscle spasms [Not Recovered/Not Resolved]
  - Headache [Not Recovered/Not Resolved]
